FAERS Safety Report 16278038 (Version 12)
Quarter: 2023Q1

REPORT INFORMATION
  Report Type: Spontaneous
  Country: CA (occurrence: CA)
  Receive Date: 20190506
  Receipt Date: 20230127
  Transmission Date: 20230417
  Serious: Yes (Other)
  Sender: FDA-Public Use
  Company Number: CA-BAUSCH-BL-2019-012666

PATIENT
  Age: 60 Year
  Sex: Female

DRUGS (177)
  1. ALBUTEROL SULFATE [Suspect]
     Active Substance: ALBUTEROL SULFATE
     Indication: Product used for unknown indication
     Dosage: DOSAGE FORM: METERED-DOSE (AEROSOL); AS REQUIRED
     Route: 065
  2. ALBUTEROL SULFATE [Suspect]
     Active Substance: ALBUTEROL SULFATE
     Route: 065
  3. ALBUTEROL SULFATE [Suspect]
     Active Substance: ALBUTEROL SULFATE
     Indication: Product used for unknown indication
     Route: 065
  4. ALBUTEROL [Suspect]
     Active Substance: ALBUTEROL
     Indication: Product used for unknown indication
     Route: 065
  5. BUDESONIDE [Suspect]
     Active Substance: BUDESONIDE
     Indication: Product used for unknown indication
     Route: 065
  6. BUDESONIDE [Suspect]
     Active Substance: BUDESONIDE
     Dosage: TABLET (DELAYED AND EXTENDED RELEASE)
     Route: 065
  7. BUDESONIDE [Suspect]
     Active Substance: BUDESONIDE
     Route: 065
  8. BUDESONIDE [Suspect]
     Active Substance: BUDESONIDE
     Indication: Product used for unknown indication
     Route: 065
  9. ALBUTEROL [Suspect]
     Active Substance: ALBUTEROL
     Indication: Product used for unknown indication
     Dosage: INHALATION
     Route: 055
  10. ALBUTEROL [Suspect]
     Active Substance: ALBUTEROL
     Route: 065
  11. ALBUTEROL [Suspect]
     Active Substance: ALBUTEROL
     Route: 065
  12. HYDROCORTISONE ACETATE [Suspect]
     Active Substance: HYDROCORTISONE ACETATE
     Indication: Product used for unknown indication
     Route: 065
  13. HYDROCORTISONE [Suspect]
     Active Substance: HYDROCORTISONE
     Indication: Product used for unknown indication
     Route: 061
  14. HYDROCORTISONE [Suspect]
     Active Substance: HYDROCORTISONE
     Route: 061
  15. HYDROCORTISONE [Suspect]
     Active Substance: HYDROCORTISONE
     Route: 065
  16. HYDROCORTISONE ACETATE [Suspect]
     Active Substance: HYDROCORTISONE ACETATE
     Indication: Product used for unknown indication
     Route: 065
  17. ESTRADIOL [Suspect]
     Active Substance: ESTRADIOL
     Indication: Product used for unknown indication
     Route: 065
  18. ESTRADIOL [Suspect]
     Active Substance: ESTRADIOL
     Route: 065
  19. FLUCONAZOLE [Suspect]
     Active Substance: FLUCONAZOLE
     Indication: Product used for unknown indication
     Dosage: CYCLICAL
     Route: 065
  20. FLUCONAZOLE [Suspect]
     Active Substance: FLUCONAZOLE
     Route: 065
  21. FLUCONAZOLE [Suspect]
     Active Substance: FLUCONAZOLE
     Route: 065
  22. FLUTICASONE PROPIONATE [Suspect]
     Active Substance: FLUTICASONE PROPIONATE
     Indication: Product used for unknown indication
     Route: 055
  23. FLUTICASONE PROPIONATE [Suspect]
     Active Substance: FLUTICASONE PROPIONATE
     Route: 065
  24. FLUTICASONE PROPIONATE [Suspect]
     Active Substance: FLUTICASONE PROPIONATE
     Dosage: INTRA-NASAL
     Route: 065
  25. FLUTICASONE PROPIONATE [Suspect]
     Active Substance: FLUTICASONE PROPIONATE
     Route: 055
  26. FLUTICASONE PROPIONATE [Suspect]
     Active Substance: FLUTICASONE PROPIONATE
     Route: 065
  27. FLUTICASONE PROPIONATE [Suspect]
     Active Substance: FLUTICASONE PROPIONATE
     Route: 065
  28. FORMOTEROL [Suspect]
     Active Substance: FORMOTEROL
     Indication: Product used for unknown indication
     Route: 065
  29. FORMOTEROL [Suspect]
     Active Substance: FORMOTEROL
     Route: 065
  30. FORMOTEROL [Suspect]
     Active Substance: FORMOTEROL
     Route: 065
  31. MONTELUKAST SODIUM [Suspect]
     Active Substance: MONTELUKAST SODIUM
     Indication: Product used for unknown indication
     Route: 065
  32. MONTELUKAST SODIUM [Suspect]
     Active Substance: MONTELUKAST SODIUM
     Route: 065
  33. MONTELUKAST SODIUM [Suspect]
     Active Substance: MONTELUKAST SODIUM
     Route: 065
  34. MONTELUKAST SODIUM [Suspect]
     Active Substance: MONTELUKAST SODIUM
     Route: 065
  35. NYSTATIN [Suspect]
     Active Substance: NYSTATIN
     Indication: Product used for unknown indication
     Route: 048
  36. NYSTATIN [Suspect]
     Active Substance: NYSTATIN
     Route: 065
  37. NYSTATIN [Suspect]
     Active Substance: NYSTATIN
     Route: 048
  38. NYSTATIN [Suspect]
     Active Substance: NYSTATIN
     Route: 048
  39. NYSTATIN [Suspect]
     Active Substance: NYSTATIN
     Route: 065
  40. NYSTATIN [Suspect]
     Active Substance: NYSTATIN
     Route: 048
  41. NYSTATIN [Suspect]
     Active Substance: NYSTATIN
     Route: 048
  42. NYSTATIN [Suspect]
     Active Substance: NYSTATIN
     Route: 065
  43. NYSTATIN [Suspect]
     Active Substance: NYSTATIN
     Route: 065
  44. OXYCODONE HYDROCHLORIDE [Suspect]
     Active Substance: OXYCODONE HYDROCHLORIDE
     Indication: Product used for unknown indication
     Dosage: CR (CONTROLLED RELEASE) TABLETS
     Route: 065
  45. OXYCODONE HYDROCHLORIDE [Suspect]
     Active Substance: OXYCODONE HYDROCHLORIDE
     Route: 065
  46. OXYCODONE HYDROCHLORIDE [Suspect]
     Active Substance: OXYCODONE HYDROCHLORIDE
     Route: 065
  47. OXYCODONE HYDROCHLORIDE [Suspect]
     Active Substance: OXYCODONE HYDROCHLORIDE
     Route: 065
  48. OXYCODONE HYDROCHLORIDE [Suspect]
     Active Substance: OXYCODONE HYDROCHLORIDE
     Route: 065
  49. OXYCODONE HYDROCHLORIDE [Suspect]
     Active Substance: OXYCODONE HYDROCHLORIDE
     Route: 065
  50. OXYCODONE HYDROCHLORIDE [Suspect]
     Active Substance: OXYCODONE HYDROCHLORIDE
     Route: 065
  51. XARELTO [Suspect]
     Active Substance: RIVAROXABAN
     Indication: Product used for unknown indication
     Route: 065
  52. XARELTO [Suspect]
     Active Substance: RIVAROXABAN
     Route: 065
  53. XARELTO [Suspect]
     Active Substance: RIVAROXABAN
     Route: 065
  54. UMECLIDINIUM BROMIDE [Suspect]
     Active Substance: UMECLIDINIUM BROMIDE
     Indication: Product used for unknown indication
     Route: 055
  55. UMECLIDINIUM BROMIDE [Suspect]
     Active Substance: UMECLIDINIUM BROMIDE
     Route: 065
  56. UMECLIDINIUM BROMIDE [Suspect]
     Active Substance: UMECLIDINIUM BROMIDE
     Route: 065
  57. UMECLIDINIUM BROMIDE [Suspect]
     Active Substance: UMECLIDINIUM BROMIDE
     Route: 055
  58. PREDNISONE [Suspect]
     Active Substance: PREDNISONE
     Indication: Product used for unknown indication
     Route: 065
  59. PREDNISONE [Suspect]
     Active Substance: PREDNISONE
     Route: 065
  60. PREDNISONE [Suspect]
     Active Substance: PREDNISONE
     Route: 065
  61. ACTONEL [Suspect]
     Active Substance: RISEDRONATE SODIUM
     Indication: Product used for unknown indication
     Route: 065
  62. BREO ELLIPTA [Suspect]
     Active Substance: FLUTICASONE FUROATE\VILANTEROL TRIFENATATE
     Indication: Product used for unknown indication
     Route: 055
  63. BREO ELLIPTA [Suspect]
     Active Substance: FLUTICASONE FUROATE\VILANTEROL TRIFENATATE
     Route: 055
  64. BREO ELLIPTA [Suspect]
     Active Substance: FLUTICASONE FUROATE\VILANTEROL TRIFENATATE
     Dosage: INHALATION
     Route: 065
  65. COLACE [Suspect]
     Active Substance: DOCUSATE SODIUM
     Indication: Product used for unknown indication
     Dosage: 3.0 DOSAGE FORMS
     Route: 065
  66. COLACE [Suspect]
     Active Substance: DOCUSATE SODIUM
     Route: 065
  67. COLACE [Suspect]
     Active Substance: DOCUSATE SODIUM
     Route: 065
  68. COLACE [Suspect]
     Active Substance: DOCUSATE SODIUM
     Route: 065
  69. OXYCODONE [Suspect]
     Active Substance: OXYCODONE
     Indication: Product used for unknown indication
     Dosage: TABLET (EXTENDEDRELEASE)
     Route: 065
  70. OXYCODONE [Suspect]
     Active Substance: OXYCODONE
     Route: 065
  71. OXYCODONE [Suspect]
     Active Substance: OXYCODONE
     Route: 065
  72. OXYCODONE [Suspect]
     Active Substance: OXYCODONE
     Dosage: PROLONGED RELEASE TABLET
     Route: 065
  73. OXYCODONE [Suspect]
     Active Substance: OXYCODONE
     Route: 065
  74. OXYCODONE [Suspect]
     Active Substance: OXYCODONE
     Route: 065
  75. OXYCODONE [Suspect]
     Active Substance: OXYCODONE
     Route: 065
  76. OXYCODONE [Suspect]
     Active Substance: OXYCODONE
     Route: 065
  77. VENTOLIN [Suspect]
     Active Substance: ALBUTEROL SULFATE
     Indication: Product used for unknown indication
     Route: 065
  78. VENTOLIN [Suspect]
     Active Substance: ALBUTEROL SULFATE
     Route: 065
  79. FORMOTEROL FUMARATE [Suspect]
     Active Substance: FORMOTEROL FUMARATE
     Indication: Product used for unknown indication
     Route: 065
  80. FORADIL [Suspect]
     Active Substance: FORMOTEROL FUMARATE
     Indication: Product used for unknown indication
     Route: 065
  81. FORADIL [Suspect]
     Active Substance: FORMOTEROL FUMARATE
     Route: 065
  82. ALBUTEROL\IPRATROPIUM [Suspect]
     Active Substance: ALBUTEROL\IPRATROPIUM
     Indication: Product used for unknown indication
     Route: 065
  83. ALBUTEROL\IPRATROPIUM [Suspect]
     Active Substance: ALBUTEROL\IPRATROPIUM
     Route: 065
  84. MONTELUKAST [Suspect]
     Active Substance: MONTELUKAST SODIUM
     Indication: Product used for unknown indication
     Route: 065
  85. MONTELUKAST [Suspect]
     Active Substance: MONTELUKAST SODIUM
     Route: 065
  86. HYDROCORTISONE\PRAMOXINE\ZINC SULFATE [Suspect]
     Active Substance: HYDROCORTISONE\PRAMOXINE\ZINC SULFATE
     Indication: Product used for unknown indication
     Dosage: AS REQUIRED
     Route: 065
  87. HYDROCORTISONE\PRAMOXINE\ZINC SULFATE [Suspect]
     Active Substance: HYDROCORTISONE\PRAMOXINE\ZINC SULFATE
     Route: 065
  88. FORMOTEROL FUMARATE [Suspect]
     Active Substance: FORMOTEROL FUMARATE
     Indication: Product used for unknown indication
     Route: 065
  89. FORMOTEROL FUMARATE [Suspect]
     Active Substance: FORMOTEROL FUMARATE
     Route: 065
  90. FORMOTEROL FUMARATE [Suspect]
     Active Substance: FORMOTEROL FUMARATE
     Route: 065
  91. FORMOTEROL FUMARATE [Suspect]
     Active Substance: FORMOTEROL FUMARATE
     Dosage: ROUTE: INHALATION
     Route: 065
  92. FORMOTEROL FUMARATE [Suspect]
     Active Substance: FORMOTEROL FUMARATE
     Route: 065
  93. FORMOTEROL FUMARATE [Suspect]
     Active Substance: FORMOTEROL FUMARATE
     Route: 065
  94. FORMOTEROL FUMARATE [Suspect]
     Active Substance: FORMOTEROL FUMARATE
     Route: 065
  95. FORMOTEROL FUMARATE [Suspect]
     Active Substance: FORMOTEROL FUMARATE
     Route: 065
  96. BENZYL BENZOATE\BISMUTH OXIDE\BISMUTH SUBGALLATE\BALSAM PERU\HYDROCORT [Suspect]
     Active Substance: BALSAM PERU\BENZYL BENZOATE\BISMUTH OXIDE\BISMUTH SUBGALLATE\HYDROCORTISONE ACETATE
     Indication: Product used for unknown indication
     Route: 065
  97. BENZYL BENZOATE\BISMUTH OXIDE\BISMUTH SUBGALLATE\BALSAM PERU\HYDROCORT [Suspect]
     Active Substance: BALSAM PERU\BENZYL BENZOATE\BISMUTH OXIDE\BISMUTH SUBGALLATE\HYDROCORTISONE ACETATE
     Route: 065
  98. BENZYL BENZOATE\BISMUTH OXIDE\BISMUTH SUBGALLATE\BALSAM PERU\HYDROCORT [Suspect]
     Active Substance: BALSAM PERU\BENZYL BENZOATE\BISMUTH OXIDE\BISMUTH SUBGALLATE\HYDROCORTISONE ACETATE
     Route: 065
  99. CLARITHROMYCIN [Suspect]
     Active Substance: CLARITHROMYCIN
     Indication: Product used for unknown indication
     Route: 065
  100. CLARITHROMYCIN [Suspect]
     Active Substance: CLARITHROMYCIN
     Route: 065
  101. CLARITHROMYCIN [Suspect]
     Active Substance: CLARITHROMYCIN
     Route: 065
  102. CLARITHROMYCIN [Suspect]
     Active Substance: CLARITHROMYCIN
     Route: 065
  103. PANTOPRAZOLE [Suspect]
     Active Substance: PANTOPRAZOLE
     Indication: Product used for unknown indication
     Route: 065
  104. PANTOPRAZOLE [Suspect]
     Active Substance: PANTOPRAZOLE
     Route: 065
  105. PANTOPRAZOLE [Suspect]
     Active Substance: PANTOPRAZOLE
     Route: 065
  106. POLYMOX [Suspect]
     Active Substance: AMOXICILLIN
     Indication: Product used for unknown indication
     Route: 065
  107. POLYMOX [Suspect]
     Active Substance: AMOXICILLIN
     Route: 065
  108. ZINC SULFATE [Suspect]
     Active Substance: ZINC SULFATE
     Indication: Product used for unknown indication
     Route: 065
  109. ZINC SULFATE [Suspect]
     Active Substance: ZINC SULFATE
     Route: 061
  110. ZINC SULFATE [Suspect]
     Active Substance: ZINC SULFATE
     Route: 061
  111. AMOXICILLIN\CLAVULANATE POTASSIUM [Suspect]
     Active Substance: AMOXICILLIN\CLAVULANATE POTASSIUM
     Indication: Product used for unknown indication
     Route: 065
  112. AMOXICILLIN\CLAVULANATE POTASSIUM [Suspect]
     Active Substance: AMOXICILLIN\CLAVULANATE POTASSIUM
     Route: 065
  113. ESOMEPRAZOLE MAGNESIUM\NAPROXEN [Suspect]
     Active Substance: ESOMEPRAZOLE MAGNESIUM\NAPROXEN
     Indication: Product used for unknown indication
     Route: 065
  114. FLONASE [Suspect]
     Active Substance: FLUTICASONE PROPIONATE
     Indication: Product used for unknown indication
     Route: 055
  115. FLONASE [Suspect]
     Active Substance: FLUTICASONE PROPIONATE
     Dosage: 2 EVERY 1 DAYS
     Route: 065
  116. FORMOTEROL [Suspect]
     Active Substance: FORMOTEROL
     Indication: Product used for unknown indication
     Route: 065
  117. FORMOTEROL [Suspect]
     Active Substance: FORMOTEROL
     Route: 065
  118. FORMOTEROL [Suspect]
     Active Substance: FORMOTEROL
     Route: 065
  119. HYDROCORTISONE\PRAMOXINE\ZINC SULFATE [Suspect]
     Active Substance: HYDROCORTISONE\PRAMOXINE\ZINC SULFATE
     Indication: Product used for unknown indication
     Route: 065
  120. HYDROCORTISONE\PRAMOXINE\ZINC SULFATE [Suspect]
     Active Substance: HYDROCORTISONE\PRAMOXINE\ZINC SULFATE
     Route: 065
  121. HYDROCORTISONE\PRAMOXINE\ZINC SULFATE [Suspect]
     Active Substance: HYDROCORTISONE\PRAMOXINE\ZINC SULFATE
     Route: 065
  122. PRAMOXINE HYDROCHLORIDE [Suspect]
     Active Substance: PRAMOXINE HYDROCHLORIDE
     Indication: Product used for unknown indication
     Route: 065
  123. HERBALS\PLANTAGO OVATA LEAF [Suspect]
     Active Substance: HERBALS\PLANTAGO OVATA LEAF
     Indication: Product used for unknown indication
     Route: 065
  124. HERBALS\PLANTAGO OVATA LEAF [Suspect]
     Active Substance: HERBALS\PLANTAGO OVATA LEAF
     Route: 065
  125. AMOXICILLIN\CLARITHROMYCIN\OMEPRAZOLE [Suspect]
     Active Substance: AMOXICILLIN\CLARITHROMYCIN\OMEPRAZOLE
     Indication: Product used for unknown indication
     Route: 065
  126. AMOXICILLIN\CLARITHROMYCIN\OMEPRAZOLE [Suspect]
     Active Substance: AMOXICILLIN\CLARITHROMYCIN\OMEPRAZOLE
     Route: 065
  127. AMOXICILLIN\CLARITHROMYCIN\OMEPRAZOLE [Suspect]
     Active Substance: AMOXICILLIN\CLARITHROMYCIN\OMEPRAZOLE
     Route: 065
  128. AMOXICILLIN\CLARITHROMYCIN\OMEPRAZOLE [Suspect]
     Active Substance: AMOXICILLIN\CLARITHROMYCIN\OMEPRAZOLE
     Route: 065
  129. NYSTATIN\ZINC OXIDE [Suspect]
     Active Substance: NYSTATIN\ZINC OXIDE
     Indication: Product used for unknown indication
     Route: 048
  130. NYSTATIN\ZINC OXIDE [Suspect]
     Active Substance: NYSTATIN\ZINC OXIDE
     Route: 065
  131. NYSTATIN\ZINC OXIDE [Suspect]
     Active Substance: NYSTATIN\ZINC OXIDE
     Route: 048
  132. RISEDRONATE SODIUM [Suspect]
     Active Substance: RISEDRONATE SODIUM
     Indication: Product used for unknown indication
     Route: 065
  133. RISEDRONATE SODIUM [Suspect]
     Active Substance: RISEDRONATE SODIUM
     Route: 065
  134. RISEDRONATE SODIUM [Suspect]
     Active Substance: RISEDRONATE SODIUM
     Route: 065
  135. RISEDRONATE SODIUM [Suspect]
     Active Substance: RISEDRONATE SODIUM
     Route: 065
  136. RISEDRONATE SODIUM [Suspect]
     Active Substance: RISEDRONATE SODIUM
     Route: 065
  137. RIVAROXABAN [Suspect]
     Active Substance: RIVAROXABAN
     Indication: Product used for unknown indication
     Route: 065
  138. RIVAROXABAN [Suspect]
     Active Substance: RIVAROXABAN
     Route: 065
  139. RIVAROXABAN [Suspect]
     Active Substance: RIVAROXABAN
     Route: 065
  140. RIVAROXABAN [Suspect]
     Active Substance: RIVAROXABAN
     Route: 065
  141. RIVAROXABAN [Suspect]
     Active Substance: RIVAROXABAN
     Route: 065
  142. AMOXICILLIN TRIHYDRATE [Suspect]
     Active Substance: AMOXICILLIN
     Indication: Product used for unknown indication
     Route: 065
  143. AMOXICILLIN TRIHYDRATE [Suspect]
     Active Substance: AMOXICILLIN
     Route: 065
  144. AMOXICILLIN\CLAVULANIC ACID [Suspect]
     Active Substance: AMOXICILLIN\CLAVULANIC ACID
     Indication: Product used for unknown indication
     Route: 065
  145. OXYCODONE [Suspect]
     Active Substance: OXYCODONE
     Indication: Product used for unknown indication
     Route: 065
  146. OXYCODONE [Suspect]
     Active Substance: OXYCODONE
     Route: 065
  147. OXYCODONE [Suspect]
     Active Substance: OXYCODONE
     Route: 065
  148. OXYCODONE [Suspect]
     Active Substance: OXYCODONE
     Route: 065
  149. AMOXICILLIN [Suspect]
     Active Substance: AMOXICILLIN
     Indication: Product used for unknown indication
     Route: 065
  150. AMOXICILLIN [Suspect]
     Active Substance: AMOXICILLIN
     Route: 065
  151. AMOXICILLIN [Suspect]
     Active Substance: AMOXICILLIN
     Route: 065
  152. AMOXICILLIN [Suspect]
     Active Substance: AMOXICILLIN
     Route: 065
  153. ESOMEPRAZOLE MAGNESIUM [Suspect]
     Active Substance: ESOMEPRAZOLE MAGNESIUM
     Indication: Product used for unknown indication
     Route: 065
  154. ESOMEPRAZOLE MAGNESIUM [Suspect]
     Active Substance: ESOMEPRAZOLE MAGNESIUM
     Route: 065
  155. FLUTICASONE [Suspect]
     Active Substance: FLUTICASONE
     Indication: Product used for unknown indication
     Route: 065
  156. PANTOPRAZOLE SODIUM [Suspect]
     Active Substance: PANTOPRAZOLE SODIUM
     Indication: Product used for unknown indication
     Route: 065
  157. PRAMOXINE [Suspect]
     Active Substance: PRAMOXINE
     Indication: Product used for unknown indication
     Route: 061
  158. PRAMOXINE [Suspect]
     Active Substance: PRAMOXINE
     Route: 061
  159. AMOXICILLIN\CLAVULANATE POTASSIUM [Suspect]
     Active Substance: AMOXICILLIN\CLAVULANATE POTASSIUM
     Indication: Product used for unknown indication
     Route: 065
  160. ESOMEPRAZOLE MAGNESIUM\NAPROXEN [Suspect]
     Active Substance: ESOMEPRAZOLE MAGNESIUM\NAPROXEN
     Indication: Product used for unknown indication
     Route: 065
  161. FLUCONAZOLE [Suspect]
     Active Substance: FLUCONAZOLE
     Indication: Product used for unknown indication
     Dosage: SOLUTION INTRAVENOUS, CYCLICAL
     Route: 065
  162. ZINC [Suspect]
     Active Substance: ZINC
     Indication: Product used for unknown indication
     Route: 065
  163. BUDESONIDE [Suspect]
     Active Substance: BUDESONIDE
     Indication: Product used for unknown indication
     Route: 055
  164. METAMUCIL [Concomitant]
     Active Substance: PLANTAGO SEED
     Indication: Product used for unknown indication
     Route: 065
  165. METAMUCIL [Concomitant]
     Active Substance: PLANTAGO SEED
     Route: 065
  166. PULMICORT TURBUHALER [Concomitant]
     Active Substance: BUDESONIDE
     Indication: Seasonal allergy
     Dosage: INTRA-NASAL
     Route: 045
  167. PULMICORT TURBUHALER [Concomitant]
     Active Substance: BUDESONIDE
     Route: 065
  168. INFLUENZA VIRUS VACCINE [Concomitant]
     Active Substance: INFLUENZA VIRUS VACCINE
     Indication: Prophylaxis
     Route: 065
  169. INFLUENZA VIRUS VACCINE [Concomitant]
     Active Substance: INFLUENZA VIRUS VACCINE
     Route: 065
  170. PNEUMOCOCCAL VACCINE POLYVALENT NOS [Concomitant]
     Active Substance: PNEUMOCOCCAL VACCINE POLYVALENT
     Indication: Prophylaxis
     Route: 065
  171. PNEUMOCOCCAL VACCINE POLYVALENT NOS [Concomitant]
     Active Substance: PNEUMOCOCCAL VACCINE POLYVALENT
     Route: 065
  172. PNEUMOCOCCAL VACCINE POLYVALENT NOS [Concomitant]
     Active Substance: PNEUMOCOCCAL VACCINE POLYVALENT
     Route: 042
  173. PNEUMOCOCCAL VACCINE POLYVALENT NOS [Concomitant]
     Active Substance: PNEUMOCOCCAL VACCINE POLYVALENT
     Route: 042
  174. PSYLLIUM HUSK [Concomitant]
     Active Substance: PSYLLIUM HUSK
     Indication: Product used for unknown indication
     Route: 065
  175. HERBALS\PLANTAGO OVATA LEAF [Concomitant]
     Active Substance: HERBALS\PLANTAGO OVATA LEAF
     Indication: Product used for unknown indication
  176. HERBALS\PLANTAGO INDICA WHOLE [Concomitant]
     Active Substance: HERBALS\PLANTAGO INDICA WHOLE
     Indication: Product used for unknown indication
  177. NEXIUM [Concomitant]
     Active Substance: ESOMEPRAZOLE MAGNESIUM
     Indication: Product used for unknown indication

REACTIONS (37)
  - Asthma [Unknown]
  - Candida infection [Unknown]
  - Chronic sinusitis [Unknown]
  - Deep vein thrombosis [Unknown]
  - Diastolic dysfunction [Unknown]
  - Disease recurrence [Unknown]
  - Diverticulum [Unknown]
  - Dyspnoea [Unknown]
  - Dyspnoea exertional [Unknown]
  - Eczema [Unknown]
  - Salpingo-oophorectomy unilateral [Unknown]
  - Embolism venous [Unknown]
  - Emphysema [Unknown]
  - Female genital tract fistula [Unknown]
  - Fungal infection [Unknown]
  - Gastrooesophageal reflux disease [Unknown]
  - Hiatus hernia [Unknown]
  - Iron deficiency anaemia [Unknown]
  - Lower respiratory tract infection [Unknown]
  - Nasal polyps [Unknown]
  - Hysterectomy [Unknown]
  - Obstructive airways disorder [Unknown]
  - Osteoarthritis [Unknown]
  - Osteoporosis [Unknown]
  - Pulmonary embolism [Unknown]
  - Respiratory symptom [Unknown]
  - Obstructive sleep apnoea syndrome [Unknown]
  - Sputum increased [Unknown]
  - Tricuspid valve incompetence [Unknown]
  - Weight increased [Unknown]
  - Sinusitis fungal [Unknown]
  - Sinusitis [Unknown]
  - Sinusitis [Unknown]
  - Cough [Unknown]
  - Wheezing [Unknown]
  - Oedema peripheral [Unknown]
  - Chest discomfort [Unknown]
